FAERS Safety Report 18965235 (Version 3)
Quarter: 2022Q3

REPORT INFORMATION
  Report Type: Report from Study
  Country: US (occurrence: None)
  Receive Date: 20210304
  Receipt Date: 20220914
  Transmission Date: 20221026
  Serious: Yes (Other)
  Sender: FDA-Public Use
  Company Number: US-MERCK HEALTHCARE KGAA-9221471

PATIENT
  Age: 42 Year
  Sex: Female

DRUGS (1)
  1. REBIF [Suspect]
     Active Substance: INTERFERON BETA-1A
     Indication: Multiple sclerosis
     Dosage: REBIJECT II
     Route: 058
     Dates: start: 20091118, end: 20220804

REACTIONS (10)
  - Focal dyscognitive seizures [Recovered/Resolved]
  - Swelling face [Unknown]
  - Malaise [Unknown]
  - Asthenia [Unknown]
  - Pyrexia [Unknown]
  - COVID-19 [Unknown]
  - Viral infection [Unknown]
  - Sinusitis [Unknown]
  - Treatment noncompliance [Not Recovered/Not Resolved]
  - Exposure to SARS-CoV-2 [Recovered/Resolved]

NARRATIVE: CASE EVENT DATE: 20200301
